FAERS Safety Report 10082060 (Version 2)
Quarter: 2014Q3

REPORT INFORMATION
  Report Type: Spontaneous
  Country: US (occurrence: US)
  Receive Date: 20140416
  Receipt Date: 20140919
  Transmission Date: 20150326
  Serious: Yes (Hospitalization, Other)
  Sender: FDA-Public Use
  Company Number: US-BAYER-2014-055760

PATIENT
  Age: 17 Year
  Sex: Female
  Weight: 90.7 kg

DRUGS (3)
  1. MIRENA [Suspect]
     Active Substance: LEVONORGESTREL
     Indication: CONTRACEPTION
     Dosage: 20 MCG/24HR, CONT
     Route: 015
     Dates: start: 20120613, end: 20130124
  2. IBUPROFEN [IBUPROFEN] [Concomitant]
     Active Substance: IBUPROFEN
  3. NAPROSYN [Concomitant]
     Active Substance: NAPROXEN

REACTIONS (13)
  - Medical device discomfort [None]
  - Depressed mood [None]
  - Genital haemorrhage [None]
  - Internal injury [None]
  - Injury [None]
  - Device issue [None]
  - Depression [None]
  - Anxiety [None]
  - Uterine perforation [None]
  - Emotional distress [None]
  - Device dislocation [None]
  - Pain [None]
  - Fear [None]

NARRATIVE: CASE EVENT DATE: 201206
